FAERS Safety Report 16068385 (Version 1)
Quarter: 2019Q1

REPORT INFORMATION
  Report Type: Spontaneous
  Country: FR (occurrence: FR)
  Receive Date: 20190313
  Receipt Date: 20190313
  Transmission Date: 20190418
  Serious: Yes (Other)
  Sender: FDA-Public Use
  Company Number: FR-ALLERGAN-1909568US

PATIENT
  Sex: Female

DRUGS (3)
  1. TRIPTORELIN PAMOATE - BP [Suspect]
     Active Substance: TRIPTORELIN PAMOATE
     Indication: MENSTRUAL CYCLE MANAGEMENT
     Route: 065
  2. OVITRELLE [Suspect]
     Active Substance: CHORIOGONADOTROPIN ALFA
     Indication: OVULATION INDUCTION
     Route: 065
  3. GONAL-F [Suspect]
     Active Substance: FOLLITROPIN
     Indication: ASSISTED FERTILISATION
     Dosage: 112.5 UNITS
     Route: 065

REACTIONS (2)
  - Ovarian hyperstimulation syndrome [Unknown]
  - Off label use [Unknown]
